FAERS Safety Report 8194262-5 (Version None)
Quarter: 2012Q1

REPORT INFORMATION
  Report Type: 
  Country: None (occurrence: None)
  Receive Date: 20120308
  Receipt Date: 20120228
  Transmission Date: 20120608
  Serious: Yes (Other)
  Sender: FDA-Public Use
  Company Number: US-JNJFOC-20120202687

PATIENT
  Sex: Female
  Weight: 86.18 kg

DRUGS (4)
  1. STELARA [Suspect]
     Indication: PSORIASIS
     Dosage: APPROXIMATE TOTAL NUMBER OF INJECTIONS RECEIVED WAS 4
     Route: 058
     Dates: start: 20110306, end: 20111013
  2. ARANELLE [Concomitant]
     Indication: CONTRACEPTION
     Dosage: 0.5/1/0.5
     Route: 048
  3. LEVOXYL [Concomitant]
  4. CRESTOR [Concomitant]

REACTIONS (1)
  - BREAST CANCER IN SITU [None]
